FAERS Safety Report 4408236-0 (Version None)
Quarter: 2004Q3

REPORT INFORMATION
  Report Type: 
  Country: None (occurrence: None)
  Receive Date: 20040726
  Receipt Date: 20040726
  Transmission Date: 20050211
  Serious: No
  Sender: FDA-Public Use
  Company Number: None

PATIENT
  Sex: Male
  Weight: 81 kg

DRUGS (4)
  1. LISINOPRIL [Suspect]
     Indication: HYPERTENSION
     Dosage: 5MG/HALF TAB  DAILY  ORAL
     Route: 048
     Dates: start: 20040602, end: 20040615
  2. LORATADINE [Concomitant]
  3. SILDENAFIL CITRATE [Concomitant]
  4. OPH OINT [Concomitant]

REACTIONS (2)
  - FACIAL PALSY [None]
  - LACRIMATION INCREASED [None]
